FAERS Safety Report 19761946 (Version 23)
Quarter: 2024Q2

REPORT INFORMATION
  Report Type: Report from Study
  Country: CO (occurrence: CO)
  Receive Date: 20210827
  Receipt Date: 20240626
  Transmission Date: 20240716
  Serious: Yes (Hospitalization, Other)
  Sender: FDA-Public Use
  Company Number: CO-TAKEDA-2021TUS038649

PATIENT
  Age: 28 Year
  Sex: Male
  Weight: 44 kg

DRUGS (3)
  1. HUMAN IMMUNOGLOBULIN G\HYALURONIDASE RECOMBINANT HUMAN [Suspect]
     Active Substance: HUMAN IMMUNOGLOBULIN G\HYALURONIDASE (HUMAN RECOMBINANT)
     Indication: Primary immunodeficiency syndrome
     Dosage: 30 GRAM, MONTHLY
     Route: 058
     Dates: start: 19960611
  2. HUMAN IMMUNOGLOBULIN G\HYALURONIDASE RECOMBINANT HUMAN [Suspect]
     Active Substance: HUMAN IMMUNOGLOBULIN G\HYALURONIDASE (HUMAN RECOMBINANT)
     Indication: Combined immunodeficiency
     Dosage: 30 GRAM, MONTHLY
     Route: 058
     Dates: start: 20200611
  3. HUMAN IMMUNOGLOBULIN G\HYALURONIDASE RECOMBINANT HUMAN [Suspect]
     Active Substance: HUMAN IMMUNOGLOBULIN G\HYALURONIDASE (HUMAN RECOMBINANT)
     Indication: Congenital hypogammaglobulinaemia

REACTIONS (38)
  - Pulmonary mass [Not Recovered/Not Resolved]
  - Faeces discoloured [Recovering/Resolving]
  - Pneumonia [Recovering/Resolving]
  - Seizure [Recovering/Resolving]
  - Renal impairment [Recovering/Resolving]
  - Cough [Not Recovered/Not Resolved]
  - Dyspnoea [Recovering/Resolving]
  - Oral disorder [Recovering/Resolving]
  - Tuberculosis [Not Recovered/Not Resolved]
  - COVID-19 [Recovered/Resolved]
  - Pneumonitis [Unknown]
  - Diarrhoea [Recovering/Resolving]
  - Pyrexia [Recovering/Resolving]
  - Vomiting [Unknown]
  - Weight decreased [Unknown]
  - Lung disorder [Recovering/Resolving]
  - Food intolerance [Recovering/Resolving]
  - Proctalgia [Not Recovered/Not Resolved]
  - Oral mucosal erythema [Recovering/Resolving]
  - Eating disorder [Recovering/Resolving]
  - Stomatitis [Recovering/Resolving]
  - Tongue ulceration [Recovering/Resolving]
  - Decreased appetite [Unknown]
  - Oropharyngeal pain [Recovering/Resolving]
  - Malaise [Recovering/Resolving]
  - Sinusitis [Unknown]
  - Malnutrition [Unknown]
  - Chronic gastritis [Unknown]
  - Pain [Not Recovered/Not Resolved]
  - Weight increased [Unknown]
  - Body height decreased [Unknown]
  - Oxygen saturation decreased [Not Recovered/Not Resolved]
  - Nausea [Recovering/Resolving]
  - Headache [Recovering/Resolving]
  - Product availability issue [Unknown]
  - Inappropriate schedule of product administration [Unknown]
  - Incorrect dose administered [Unknown]
  - Product prescribing error [Unknown]

NARRATIVE: CASE EVENT DATE: 20210610
